FAERS Safety Report 5056970-4 (Version None)
Quarter: 2006Q2

REPORT INFORMATION
  Report Type: 
  Country: None (occurrence: None)
  Receive Date: 20060622
  Receipt Date: 20051027
  Transmission Date: 20061013
  Serious: Yes (Disabling, Other)
  Sender: FDA-Public Use
  Company Number: US-JNJFOC-20050900264

PATIENT
  Age: 65 Year
  Sex: Female
  Weight: 72.5755 kg

DRUGS (8)
  1. DURAGESIC-100 [Suspect]
     Indication: PAIN
     Dosage: 75 UG/HR, 1 IN 72 HOUR, TRANSDERMAL
     Route: 062
     Dates: start: 20030101
  2. NEURONTIN [Concomitant]
  3. CENTRUM SILVER (CENTRUM SILVER) [Concomitant]
  4. GARLIQUE (GARLIC) [Concomitant]
  5. CALCIUM WITH VITAMIN D (CALCIUM WITH VITAMIN D) [Concomitant]
  6. OMEGA 3 (FISH OIL) [Concomitant]
  7. PERCOCET [Concomitant]
  8. EXCEDRIN (MIGRAINE) [Concomitant]

REACTIONS (3)
  - ASTHENIA [None]
  - HYPOAESTHESIA [None]
  - TREMOR [None]
